FAERS Safety Report 6017073-5 (Version None)
Quarter: 2008Q4

REPORT INFORMATION
  Report Type: 
  Country: None (occurrence: None)
  Receive Date: 20081223
  Receipt Date: 20081216
  Transmission Date: 20090506
  Serious: Yes (Other)
  Sender: FDA-Public Use
  Company Number: US-ASTRAZENECA-2008UW28088

PATIENT
  Age: 68 Year
  Sex: Female
  Weight: 45.4 kg

DRUGS (1)
  1. ARIMIDEX [Suspect]
     Indication: BREAST CANCER
     Route: 048
     Dates: start: 20081010

REACTIONS (6)
  - ARTHRITIS [None]
  - BONE PAIN [None]
  - COLLAPSE OF LUNG [None]
  - DYSPNOEA [None]
  - MALIGNANT MELANOMA [None]
  - SPINAL CORD OEDEMA [None]
